FAERS Safety Report 20289030 (Version 1)
Quarter: 2022Q1

REPORT INFORMATION
  Report Type: Spontaneous
  Country: FR (occurrence: FR)
  Receive Date: 20220104
  Receipt Date: 20220104
  Transmission Date: 20220423
  Serious: Yes (Hospitalization)
  Sender: FDA-Public Use
  Company Number: FR-VALIDUS PHARMACEUTICALS LLC-FR-VDP-2021-014792

PATIENT

DRUGS (2)
  1. FUROSEMIDE [Suspect]
     Active Substance: FUROSEMIDE
     Indication: Oedema peripheral
     Dosage: 60 MG, QD
     Route: 042
     Dates: start: 20211125, end: 20211129
  2. FUROSEMIDE [Suspect]
     Active Substance: FUROSEMIDE
     Dosage: UNK UNK,
     Route: 065

REACTIONS (1)
  - Metabolic alkalosis [Recovered/Resolved]

NARRATIVE: CASE EVENT DATE: 20210101
